FAERS Safety Report 5007569-7 (Version None)
Quarter: 2006Q2

REPORT INFORMATION
  Report Type: 
  Country: None (occurrence: None)
  Receive Date: 20060517
  Receipt Date: 20060515
  Transmission Date: 20061013
  Serious: Yes (Hospitalization)
  Sender: FDA-Public Use
  Company Number: 219993

PATIENT
  Age: 15 Year
  Sex: Female

DRUGS (7)
  1. AVASTIN [Suspect]
     Indication: RENAL CELL CARCINOMA STAGE UNSPECIFIED
  2. VINCRISTINE [Concomitant]
  3. CHEMOTHERAPY NOS (ANTINEOPLASTIC AGENT NOS) [Concomitant]
  4. DARBEPOETIN ALFA [Concomitant]
  5. KEFLEX [Concomitant]
  6. VORICONAZOLE [Concomitant]
  7. BACTRIM [Concomitant]

REACTIONS (5)
  - BRAIN SCAN ABNORMAL [None]
  - CONVULSION [None]
  - HYPERTENSIVE EMERGENCY [None]
  - NEPHROTIC SYNDROME [None]
  - RENAL FAILURE ACUTE [None]
